FAERS Safety Report 5761309-2 (Version None)
Quarter: 2008Q2

REPORT INFORMATION
  Report Type: 
  Country: None (occurrence: None)
  Receive Date: 20080606
  Receipt Date: 20080528
  Transmission Date: 20081010
  Serious: Yes (Other)
  Sender: FDA-Public Use
  Company Number: JP-MERCK-0805USA04944

PATIENT
  Age: 55 Year
  Sex: Male

DRUGS (6)
  1. PEPCID RPD [Suspect]
     Indication: GASTRIC ULCER
     Route: 048
     Dates: start: 20080316, end: 20080507
  2. LOXONIN [Suspect]
     Indication: PAIN
     Route: 048
     Dates: start: 20080403, end: 20080507
  3. PROMAC [Suspect]
     Indication: RADIATION MUCOSITIS
     Route: 048
     Dates: start: 20080403, end: 20080507
  4. ALLOID G [Suspect]
     Indication: RADIATION MUCOSITIS
     Route: 048
     Dates: start: 20080403, end: 20080507
  5. RHYTHMY [Suspect]
     Indication: INSOMNIA
     Route: 048
     Dates: start: 20080312, end: 20080507
  6. CEREKINON [Concomitant]
     Indication: GASTRITIS
     Route: 048
     Dates: start: 20080316, end: 20080507

REACTIONS (3)
  - ERYTHEMA MULTIFORME [None]
  - LYMPHOCYTE STIMULATION TEST POSITIVE [None]
  - TOXIC SKIN ERUPTION [None]
